FAERS Safety Report 4919892-2 (Version None)
Quarter: 2006Q1

REPORT INFORMATION
  Report Type: 
  Country: None (occurrence: None)
  Receive Date: 20060217
  Receipt Date: 20060207
  Transmission Date: 20060701
  Serious: Yes (Other)
  Sender: FDA-Public Use
  Company Number: 2005156140

PATIENT
  Sex: Female
  Weight: 83.9154 kg

DRUGS (6)
  1. RELPAX [Suspect]
     Indication: CLUSTER HEADACHE
     Dosage: 40 MG (40 MG, 1 IN 1 D), ORAL
     Route: 048
     Dates: start: 20050101
  2. RELPAX [Suspect]
     Indication: MIGRAINE
     Dosage: 40 MG (40 MG, 1 IN 1 D), ORAL
     Route: 048
     Dates: start: 20050101
  3. OXYCODONE HCL [Concomitant]
  4. OXYCONTIN (OYCODONE HYDROCHLORIDE) [Concomitant]
  5. VALIUM [Concomitant]
  6. ESTRACE [Concomitant]

REACTIONS (12)
  - BLINDNESS TRANSIENT [None]
  - BLOOD TRIGLYCERIDES INCREASED [None]
  - CONDITION AGGRAVATED [None]
  - DRUG INEFFECTIVE [None]
  - HIGH DENSITY LIPOPROTEIN DECREASED [None]
  - NASAL CONGESTION [None]
  - NERVE INJURY [None]
  - PHARMACEUTICAL PRODUCT COMPLAINT [None]
  - SELF-MEDICATION [None]
  - SKIN LACERATION [None]
  - TOOTH INFECTION [None]
  - TOTAL CHOLESTEROL/HDL RATIO INCREASED [None]
